FAERS Safety Report 4688401-8 (Version None)
Quarter: 2005Q2

REPORT INFORMATION
  Report Type: 
  Country: None (occurrence: None)
  Receive Date: 20050610
  Receipt Date: 20050610
  Transmission Date: 20051028
  Serious: Yes (Death)
  Sender: FDA-Public Use
  Company Number: None

PATIENT
  Age: 82 Year
  Sex: Female
  Weight: 63.5036 kg

DRUGS (2)
  1. ATIVAN [Suspect]
     Dosage: 10MG
     Dates: start: 20050119, end: 20050120
  2. SALINE [Suspect]
     Dosage: 9 MG STRENGT
     Dates: start: 20050119, end: 20050120

REACTIONS (6)
  - CARDIAC ARREST [None]
  - COMA [None]
  - EYE DISORDER [None]
  - INCORRECT DOSE ADMINISTERED [None]
  - MYDRIASIS [None]
  - UNRESPONSIVE TO PAIN STIMULI [None]
